FAERS Safety Report 19172512 (Version 1)
Quarter: 2021Q2

REPORT INFORMATION
  Report Type: Report from Study
  Country: BR (occurrence: BR)
  Receive Date: 20210423
  Receipt Date: 20210423
  Transmission Date: 20210717
  Serious: Yes (Life-Threatening, Hospitalization, Other)
  Sender: FDA-Public Use
  Company Number: NVSC2021BR088396

PATIENT
  Sex: Female

DRUGS (9)
  1. TAMOXIFEN [Concomitant]
     Active Substance: TAMOXIFEN
     Indication: PRODUCT USED FOR UNKNOWN INDICATION
     Dosage: UNK
     Route: 065
     Dates: start: 2017
  2. FASLODEX [Concomitant]
     Active Substance: FULVESTRANT
     Indication: PRODUCT USED FOR UNKNOWN INDICATION
     Dosage: UNK
     Route: 065
  3. FULVESTRANT. [Concomitant]
     Active Substance: FULVESTRANT
     Indication: PRODUCT USED FOR UNKNOWN INDICATION
     Dosage: UNK
     Route: 065
     Dates: start: 2014
  4. ANASTROZOLE. [Concomitant]
     Active Substance: ANASTROZOLE
     Indication: PRODUCT USED FOR UNKNOWN INDICATION
     Dosage: UNK
     Route: 065
  5. ZOMETA [Concomitant]
     Active Substance: ZOLEDRONIC ACID
     Indication: PRODUCT USED FOR UNKNOWN INDICATION
     Dosage: UNK
     Route: 065
     Dates: start: 2014
  6. TAXOL [Concomitant]
     Active Substance: PACLITAXEL
     Indication: CHEMOTHERAPY
     Dosage: UNK (IN USE)
     Route: 065
     Dates: start: 202010
  7. FULVESTRANT. [Concomitant]
     Active Substance: FULVESTRANT
     Dosage: UNK
     Route: 065
     Dates: end: 2018
  8. LETROZOLE. [Suspect]
     Active Substance: LETROZOLE
     Indication: PRODUCT USED FOR UNKNOWN INDICATION
     Dosage: UNK
     Route: 065
  9. PROLIA [Concomitant]
     Active Substance: DENOSUMAB
     Indication: BONE DENSITY INCREASED
     Dosage: UNK
     Route: 065

REACTIONS (18)
  - Near death experience [Unknown]
  - Neoplasm progression [Unknown]
  - Malaise [Unknown]
  - Ovarian cyst [Unknown]
  - Extrasystoles [Unknown]
  - Lymphadenopathy [Unknown]
  - Metastases to bone [Unknown]
  - Hypersensitivity [Unknown]
  - Weight increased [Unknown]
  - Pyrexia [Unknown]
  - Hyperkeratosis [Unknown]
  - Drug ineffective [Unknown]
  - Vascular pain [Unknown]
  - Metastases to skin [Unknown]
  - Neuropathy peripheral [Unknown]
  - Osteonecrosis [Unknown]
  - Adverse drug reaction [Unknown]
  - Skin papilloma [Unknown]

NARRATIVE: CASE EVENT DATE: 2007
